FAERS Safety Report 26195350 (Version 2)
Quarter: 2025Q4

REPORT INFORMATION
  Report Type: Report from Study
  Country: EU (occurrence: EU)
  Receive Date: 20251224
  Receipt Date: 20251229
  Transmission Date: 20260118
  Serious: Yes (Hospitalization)
  Sender: Haleon PLC
  Company Number: EU-002147023-NVSC2022DE094151

PATIENT
  Sex: Female

DRUGS (9)
  1. DICLOFENAC [Suspect]
     Active Substance: DICLOFENAC
     Indication: Product used for unknown indication
     Dosage: 150 MG. PATIENT ROA: UNKNOWN. AND 1ST ADMIN DATE;15 NOV 2023
  2. COSENTYX [Suspect]
     Active Substance: SECUKINUMAB
     Indication: Axial spondyloarthritis
     Dosage: 150 MG, PATIENT: UNKNOWN, FIRST ADMIN DATE: 06 NOV 2024
  3. COSENTYX [Suspect]
     Active Substance: SECUKINUMAB
     Dosage: 150 MG, PATIENT ROA: UNKNOWN, FIRST ADMIN DATE: 01 MAY 2022
  4. COSENTYX [Suspect]
     Active Substance: SECUKINUMAB
     Dosage: 150 MG, QMO (INJECTION NOS), PATIENT ROA: UNKNOWN, FIRST ADMIN DATE: 06 OCT 2021
     Dates: start: 20211006, end: 20220223
  5. IBUPROFEN [Concomitant]
     Active Substance: IBUPROFEN
     Indication: Product used for unknown indication
     Dosage: 600 MG. PATIENT ROA: UNKNOWN, FIRST ADMIN DATE: 28-MAR-2022
  6. IBUPROFEN [Concomitant]
     Active Substance: IBUPROFEN
     Dosage: 150 MG. PATIENT ROA: UNKNOWN, FIST ADMIN DATE: 01-FEB-2024
  7. NAPROXEN [Concomitant]
     Active Substance: NAPROXEN
     Indication: Product used for unknown indication
     Dosage: 500 MG. PATIENT ROA: UNKNOWN; FIRST ADMIN DATE: 06-JUL-2022
  8. NAPROXEN [Concomitant]
     Active Substance: NAPROXEN
     Dosage: 125 MG. PATIENT ROA: UNKNOWN; FIRST ADMIN DATE: 06-JUL-2022
  9. NAPROXEN [Concomitant]
     Active Substance: NAPROXEN
     Dosage: 125 MG. PATIENT ROA: UNKNOWN, FIRST ADMIN DATE: 15-MAY-2024

REACTIONS (19)
  - Teratoma [Recovered/Resolved]
  - Rotator cuff syndrome [Not Recovered/Not Resolved]
  - Exostosis [Not Recovered/Not Resolved]
  - Cough [Unknown]
  - Influenza like illness [Unknown]
  - Animal bite [Unknown]
  - Temporomandibular pain and dysfunction syndrome [Unknown]
  - Ankle impingement [Unknown]
  - Synovitis [Not Recovered/Not Resolved]
  - Pain in extremity [Unknown]
  - Eczema eyelids [Unknown]
  - Aphthous ulcer [Unknown]
  - Oral herpes [Unknown]
  - Oropharyngeal pain [Unknown]
  - Laryngitis [Unknown]
  - Chondromalacia [Not Recovered/Not Resolved]
  - Eczema [Unknown]
  - Pruritus [Unknown]
  - Pharyngitis [Unknown]

NARRATIVE: CASE EVENT DATE: 20211115
